FAERS Safety Report 8832529 (Version 1)
Quarter: 2012Q4

REPORT INFORMATION
  Report Type: 
  Country: US (occurrence: US)
  Receive Date: 20121010
  Receipt Date: 20121010
  Transmission Date: 20130627
  Serious: No
  Sender: FDA-Public Use
  Company Number: US-BAYER-2012-105684

PATIENT
  Age: 33 Year
  Sex: Female

DRUGS (3)
  1. BETASERON [Suspect]
     Indication: MULTIPLE SCLEROSIS
     Dosage: 0.25 mg, QOD
     Route: 058
  2. CLARITIN D [Concomitant]
     Dosage: 5120 UNK, UNK
  3. ALEVE [Concomitant]
     Dosage: 220 mg, UNK

REACTIONS (1)
  - Influenza like illness [Unknown]
